FAERS Safety Report 6249078-3 (Version None)
Quarter: 2009Q2

REPORT INFORMATION
  Report Type: 
  Country: None (occurrence: None)
  Receive Date: 20090624
  Receipt Date: 20090624
  Transmission Date: 20091009
  Serious: Yes (Other)
  Sender: FDA-Public Use
  Company Number: None

PATIENT
  Age: 63 Year
  Sex: Female
  Weight: 54.8852 kg

DRUGS (1)
  1. REMERON [Suspect]
     Indication: DEPRESSION
     Dosage: 30MG 1 X PER DAY PO
     Route: 048
     Dates: start: 20090202, end: 20090404

REACTIONS (7)
  - DRUG INEFFECTIVE [None]
  - GLAUCOMA [None]
  - MUSCULOSKELETAL PAIN [None]
  - MYALGIA [None]
  - MYOSITIS [None]
  - NECK PAIN [None]
  - NUCHAL RIGIDITY [None]
